FAERS Safety Report 5315997-5 (Version None)
Quarter: 2007Q2

REPORT INFORMATION
  Report Type: 
  Country: None (occurrence: None)
  Receive Date: 20070503
  Receipt Date: 20070419
  Transmission Date: 20071010
  Serious: Yes (Other)
  Sender: FDA-Public Use
  Company Number: JP-ROCHE-490535

PATIENT
  Age: 7 Year
  Sex: Female
  Weight: 25 kg

DRUGS (6)
  1. TAMIFLU [Suspect]
     Dosage: REPORTED FORM: DRY SYRUP.
     Route: 048
     Dates: start: 20070319, end: 20070321
  2. TAMIFLU [Suspect]
     Route: 048
     Dates: start: 20070322, end: 20070322
  3. ASVERIN [Concomitant]
     Route: 048
  4. PULSMARIN A [Concomitant]
     Route: 048
  5. PERIACTIN [Concomitant]
     Route: 048
  6. BERACHIN [Concomitant]
     Route: 048

REACTIONS (1)
  - ABNORMAL BEHAVIOUR [None]
